FAERS Safety Report 12174083 (Version 2)
Quarter: 2016Q1

REPORT INFORMATION
  Report Type: Spontaneous
  Country: US (occurrence: US)
  Receive Date: 20160314
  Receipt Date: 20160314
  Transmission Date: 20160526
  Serious: No
  Sender: FDA-Public Use
  Company Number: US-HOSPIRA-3107207

PATIENT
  Age: 75 Year
  Sex: Female
  Weight: 78.4 kg

DRUGS (2)
  1. DEXTROSE. [Suspect]
     Active Substance: DEXTROSE
     Indication: MEDICATION DILUTION
     Route: 041
  2. DOCETAXEL. [Suspect]
     Active Substance: DOCETAXEL
     Indication: CHEMOTHERAPY
     Route: 041

REACTIONS (2)
  - Accidental exposure to product [Recovered/Resolved]
  - Device leakage [Recovered/Resolved]

NARRATIVE: CASE EVENT DATE: 20151116
